FAERS Safety Report 24742283 (Version 1)
Quarter: 2024Q4

REPORT INFORMATION
  Report Type: Spontaneous
  Country: US (occurrence: None)
  Receive Date: 20241214
  Receipt Date: 20241214
  Transmission Date: 20250114
  Serious: Yes (Disabling)
  Sender: Public
  Company Number: None

PATIENT
  Age: 61 Year
  Sex: Female
  Weight: 87.75 kg

DRUGS (11)
  1. ALENDRONATE SODIUM [Suspect]
     Active Substance: ALENDRONATE SODIUM
     Indication: Bone density abnormal
     Dosage: 1 TABLET ONCE A WEEK ORAL ?
     Route: 048
  2. OMEPRAZOLE [Concomitant]
     Active Substance: OMEPRAZOLE
  3. CETIRIZINE [Concomitant]
     Active Substance: CETIRIZINE HYDROCHLORIDE
  4. FLUTICASONE [Concomitant]
     Active Substance: FLUTICASONE
  5. PROPIONATE [Concomitant]
  6. CALCIUM [Concomitant]
     Active Substance: CALCIUM
  7. VITAMIN B COMPLEX [Concomitant]
     Active Substance: CYANOCOBALAMIN\DEXPANTHENOL\NIACINAMIDE\PYRIDOXINE HYDROCHLORIDE\RIBOFLAVIN 5^-PHOSPHATE SODIUM\THIA
  8. ZINC [Concomitant]
     Active Substance: ZINC
  9. GLUCOSAMINE [Concomitant]
     Active Substance: GLUCOSAMINE
  10. Chondroitn [Concomitant]
  11. DIMETHYL SULFONE [Concomitant]
     Active Substance: DIMETHYL SULFONE

REACTIONS (6)
  - Feeling abnormal [None]
  - Bone pain [None]
  - Myalgia [None]
  - Mobility decreased [None]
  - Joint noise [None]
  - Arthralgia [None]

NARRATIVE: CASE EVENT DATE: 20240401
